FAERS Safety Report 9552958 (Version 1)
Quarter: 2013Q3

REPORT INFORMATION
  Report Type: Spontaneous
  Country: US (occurrence: None)
  Receive Date: 20130724
  Receipt Date: 20130724
  Transmission Date: 20140515
  Serious: Yes (Other)
  Sender: FDA-Public Use
  Company Number: PHEH2013US003052

PATIENT
  Age: 66 Year
  Sex: Male
  Weight: 80.3 kg

DRUGS (9)
  1. GLEEVEC [Suspect]
     Indication: GASTROINTESTINAL STROMAL TUMOUR
     Dosage: 400 MG, EVERY NIGHT AT BEDTIME, ORAL
     Route: 048
  2. CENTRUM SILVER (ASCORBIC ACID, CALCIUM, MINNERALS NSO, RETINOL, TOCOPHERYL ACETATE, VITAMIN B NOS, VITAMIN NOS, ZINIC) [Concomitant]
  3. LORAZEPAM (LORAZEPAM) [Concomitant]
  4. VITAMIN B12 (CYANOCOBALAMIN) [Concomitant]
  5. IRON (IRON) [Concomitant]
  6. XANAX (ALPRAZOLAM) [Concomitant]
  7. AVODART (DUTASTERIDE) CAPSULES [Concomitant]
  8. MULTIVIT (VITAMINS NOS) [Concomitant]
  9. SUTENT SUNITINIB MALATE) [Concomitant]

REACTIONS (4)
  - Neoplasm [None]
  - Malaise [None]
  - Diarrhoea [None]
  - Drug ineffective [None]
